FAERS Safety Report 6901573-7 (Version None)
Quarter: 2010Q3

REPORT INFORMATION
  Report Type: 
  Country: None (occurrence: None)
  Receive Date: 20100803
  Receipt Date: 20080220
  Transmission Date: 20110219
  Serious: No
  Sender: FDA-Public Use
  Company Number: US-PFIZER INC-2008016765

PATIENT
  Age: 15 Year
  Sex: Female
  Weight: 47.6 kg

DRUGS (3)
  1. LYRICA [Suspect]
     Indication: CYSTITIS INTERSTITIAL
     Dates: start: 20080218
  2. ELMIRON [Concomitant]
  3. HERBAL PREPARATION [Concomitant]

REACTIONS (1)
  - PAIN IN EXTREMITY [None]
